FAERS Safety Report 6210671-5 (Version None)
Quarter: 2009Q2

REPORT INFORMATION
  Report Type: 
  Country: None (occurrence: None)
  Receive Date: 20090527
  Receipt Date: 20090513
  Transmission Date: 20091009
  Serious: Yes (Hospitalization)
  Sender: FDA-Public Use
  Company Number: 2009AL003219

PATIENT
  Age: 62 Year
  Sex: Male
  Weight: 85.2762 kg

DRUGS (18)
  1. DIGOXIN [Suspect]
     Dosage: PO
     Route: 048
     Dates: start: 20080612, end: 20080925
  2. SINEMET [Concomitant]
  3. FORTAZ [Concomitant]
  4. NOVOLOG [Concomitant]
  5. FLOMAXLUMIGAN [Concomitant]
  6. SIMVASTATIN [Concomitant]
  7. XALATAN [Concomitant]
  8. KEPPRA [Concomitant]
  9. COSOPT [Concomitant]
  10. LISINOPRIL [Concomitant]
  11. CARDIZEM [Concomitant]
  12. ATROVENT [Concomitant]
  13. METOPROLOL SUCCINATE [Concomitant]
  14. POTASSIUM CHLORIDE [Concomitant]
  15. PROVIGIL [Concomitant]
  16. TAPAZOLE [Concomitant]
  17. VENTOLIN [Concomitant]
  18. MULTI-VITAMINS [Concomitant]

REACTIONS (3)
  - ASTHENIA [None]
  - BRADYCARDIA [None]
  - FATIGUE [None]
